FAERS Safety Report 13909562 (Version 2)
Quarter: 2017Q3

REPORT INFORMATION
  Report Type: Spontaneous
  Country: US (occurrence: US)
  Receive Date: 20170828
  Receipt Date: 20170915
  Transmission Date: 20171127
  Serious: No
  Sender: FDA-Public Use
  Company Number: US-PFIZER INC-2017365151

PATIENT
  Sex: Male

DRUGS (2)
  1. ADVIL [Suspect]
     Active Substance: IBUPROFEN
     Indication: MUSCLE STRAIN
     Dosage: 200 MG, UNK
     Dates: start: 20170817
  2. ADVIL [Suspect]
     Active Substance: IBUPROFEN
     Indication: NECK PAIN

REACTIONS (2)
  - Rash [Unknown]
  - Herpes zoster [Unknown]

NARRATIVE: CASE EVENT DATE: 20170818
